FAERS Safety Report 12351383 (Version 1)
Quarter: 2016Q2

REPORT INFORMATION
  Report Type: Spontaneous
  Country: JP (occurrence: JP)
  Receive Date: 20160510
  Receipt Date: 20160510
  Transmission Date: 20160815
  Serious: Yes (Hospitalization, Other)
  Sender: FDA-Public Use
  Company Number: JP-PFIZER INC-2016133989

PATIENT
  Age: 68 Year
  Sex: Male
  Weight: 45 kg

DRUGS (3)
  1. ZOSYN [Suspect]
     Active Substance: PIPERACILLIN SODIUM\TAZOBACTAM SODIUM
     Indication: INFECTIOUS PLEURAL EFFUSION
     Dosage: 4.5 G, 3X/DAY
     Route: 041
     Dates: start: 20160216, end: 20160218
  2. CALONAL [Suspect]
     Active Substance: ACETAMINOPHEN
     Indication: PYREXIA
     Dosage: 400 MG, (400 MG/DOSE, 2-3 DOSES/DAY)
     Route: 048
     Dates: start: 20160125, end: 20160224
  3. CLINDAMYCIN PHOSPHATE. [Suspect]
     Active Substance: CLINDAMYCIN PHOSPHATE
     Indication: INFECTIOUS PLEURAL EFFUSION
     Dosage: 600 MG, 1X/DAY
     Route: 041
     Dates: start: 20160201, end: 20160215

REACTIONS (1)
  - Tubulointerstitial nephritis [Recovering/Resolving]

NARRATIVE: CASE EVENT DATE: 20160125
